FAERS Safety Report 13114766 (Version 4)
Quarter: 2017Q1

REPORT INFORMATION
  Report Type: Spontaneous
  Country: US (occurrence: US)
  Receive Date: 20170113
  Receipt Date: 20170330
  Transmission Date: 20170428
  Serious: Yes (Other)
  Sender: FDA-Public Use
  Company Number: US-009507513-1701USA002499

PATIENT
  Age: 34 Year
  Sex: Female
  Weight: 109.75 kg

DRUGS (1)
  1. NEXPLANON [Suspect]
     Active Substance: ETONOGESTREL
     Indication: CONTRACEPTION
     Dosage: ONE ROD / THREE YEARS
     Route: 059
     Dates: end: 20170103

REACTIONS (1)
  - Cellulitis staphylococcal [Recovered/Resolved]

NARRATIVE: CASE EVENT DATE: 20170103
